FAERS Safety Report 5151263-9 (Version None)
Quarter: 2006Q4

REPORT INFORMATION
  Report Type: 
  Country: None (occurrence: None)
  Receive Date: 20061114
  Receipt Date: 20061114
  Transmission Date: 20070319
  Serious: Yes (Other)
  Sender: FDA-Public Use
  Company Number: None

PATIENT
  Age: 8 Year
  Sex: Female

DRUGS (2)
  1. ACETAMINOPHEN [Suspect]
     Indication: HEADACHE
     Dosage: 500MG   EVERY 6 HOURS   INJ
     Dates: start: 20061101, end: 20061110
  2. ACETAMINOPHEN [Suspect]
     Indication: PYREXIA
     Dosage: 500MG   EVERY 6 HOURS   INJ
     Dates: start: 20061101, end: 20061110

REACTIONS (7)
  - GINGIVAL DISCOLOURATION [None]
  - GINGIVAL PAIN [None]
  - GINGIVITIS [None]
  - HEADACHE [None]
  - ORAL SOFT TISSUE DISORDER [None]
  - PHARMACEUTICAL PRODUCT COMPLAINT [None]
  - PHARYNGOLARYNGEAL PAIN [None]
